FAERS Safety Report 5703072-7 (Version None)
Quarter: 2008Q2

REPORT INFORMATION
  Report Type: 
  Country: None (occurrence: None)
  Receive Date: 20080411
  Receipt Date: 20080401
  Transmission Date: 20081010
  Serious: Yes (Other)
  Sender: FDA-Public Use
  Company Number: US-PFIZER INC-2008029152

PATIENT
  Sex: Female

DRUGS (1)
  1. CADUET [Suspect]

REACTIONS (3)
  - FALL [None]
  - HYPOTONIA [None]
  - MUSCLE DISORDER [None]
